FAERS Safety Report 13524010 (Version 1)
Quarter: 2017Q2

REPORT INFORMATION
  Report Type: Report from Study
  Country: US (occurrence: US)
  Receive Date: 20170508
  Receipt Date: 20170508
  Transmission Date: 20170830
  Serious: Yes (Other)
  Sender: FDA-Public Use
  Company Number: PHEH2017US013507

PATIENT
  Sex: Male

DRUGS (2)
  1. CHOLECALCIFEROL [Concomitant]
     Active Substance: CHOLECALCIFEROL
     Indication: PRODUCT USED FOR UNKNOWN INDICATION
     Route: 065
  2. GILENYA [Suspect]
     Active Substance: FINGOLIMOD HYDROCHLORIDE
     Indication: MULTIPLE SCLEROSIS
     Dosage: 0.5 MG, QD
     Route: 048
     Dates: start: 201606

REACTIONS (9)
  - Memory impairment [Unknown]
  - Headache [Unknown]
  - Hepatitis [Unknown]
  - Aphasia [Unknown]
  - Emotional disorder [Unknown]
  - Hepatic enzyme increased [Unknown]
  - Depression [Unknown]
  - Anger [Unknown]
  - Pain in extremity [Unknown]
